FAERS Safety Report 7388611-5 (Version None)
Quarter: 2011Q2

REPORT INFORMATION
  Report Type: 
  Country: None (occurrence: None)
  Receive Date: 20110401
  Receipt Date: 20110325
  Transmission Date: 20111010
  Serious: Yes (Hospitalization)
  Sender: FDA-Public Use
  Company Number: FR-PFIZER INC-2011066597

PATIENT
  Age: 27 Year
  Sex: Male

DRUGS (15)
  1. SEREVENT [Concomitant]
     Dosage: 2 DF PER DAY
  2. ZITHROMAX [Concomitant]
     Dosage: 1 A DAY 5 DAYS PER WEEK
  3. ZYVOX [Suspect]
     Indication: STAPHYLOCOCCAL INFECTION
     Dosage: 1 DF, 2X/DAY
     Route: 048
     Dates: start: 20110222, end: 20110227
  4. TOBRAMYCIN [Concomitant]
  5. VENTOLIN [Concomitant]
     Dosage: AS NEEDED
  6. A 313 [Concomitant]
     Dosage: 2 PER WEEK
  7. UVEDOSE [Concomitant]
     Dosage: 1 DF, MONTHLY
  8. SINGULAIR [Concomitant]
     Dosage: 2 DF PER DAY
  9. OXEOL [Concomitant]
     Dosage: 1 DF A DAY
  10. MUXOL /FRA/ [Concomitant]
     Dosage: 2 TO 6 TABLETS A DAY
  11. TOCO [Concomitant]
     Dosage: 2 DF PER DAY
  12. CREON [Concomitant]
     Dosage: 1 A DAY
  13. COLCHICINE [Concomitant]
     Dosage: 2 MG A DAY
  14. LANTUS [Concomitant]
     Dosage: 12 IU A DAY
  15. NOVORAPID [Concomitant]
     Dosage: 6-10-6-6 IU

REACTIONS (2)
  - VASCULAR PURPURA [None]
  - ARTHRALGIA [None]
